FAERS Safety Report 5168751-1 (Version None)
Quarter: 2006Q4

REPORT INFORMATION
  Report Type: 
  Country: None (occurrence: None)
  Receive Date: 20061211
  Receipt Date: 20041130
  Transmission Date: 20070319
  Serious: Yes (Hospitalization)
  Sender: FDA-Public Use
  Company Number: US-BAYER-200421086BWH

PATIENT
  Age: 62 Year
  Sex: Male
  Weight: 73 kg

DRUGS (6)
  1. LEVITRA [Suspect]
     Indication: ERECTILE DYSFUNCTION
     Dosage: TOTAL DAILY DOSE: 10 MG  UNIT DOSE: 10 MG
     Route: 048
     Dates: start: 20041103, end: 20041103
  2. DIOVAN [Concomitant]
  3. ASPIRIN [Concomitant]
     Dosage: TOTAL DAILY DOSE: 81 MG  UNIT DOSE: 81 MG
  4. COREG [Concomitant]
  5. ALBUTEROL [Concomitant]
  6. ATROVENT [Concomitant]

REACTIONS (18)
  - ALCOHOL USE [None]
  - BLOOD CREATINE PHOSPHOKINASE INCREASED [None]
  - BLOOD CREATINE PHOSPHOKINASE MB INCREASED [None]
  - BLOOD PRESSURE SYSTOLIC INCREASED [None]
  - CEREBRAL CALCIFICATION [None]
  - CEREBROVASCULAR ACCIDENT [None]
  - DILATATION ATRIAL [None]
  - FACIAL PARESIS [None]
  - HEMIPLEGIA [None]
  - HYPOAESTHESIA [None]
  - HYPOAESTHESIA FACIAL [None]
  - LACUNAR INFARCTION [None]
  - MUSCULAR WEAKNESS [None]
  - PARAESTHESIA [None]
  - SPEECH DISORDER [None]
  - TRANSIENT ISCHAEMIC ATTACK [None]
  - UNEVALUABLE EVENT [None]
  - VENTRICULAR EXTRASYSTOLES [None]
